FAERS Safety Report 4350008-X (Version None)
Quarter: 2004Q2

REPORT INFORMATION
  Report Type: 
  Country: None (occurrence: None)
  Receive Date: 20040428
  Receipt Date: 20040428
  Transmission Date: 20050107
  Serious: Yes (Other)
  Sender: FDA-Public Use
  Company Number: None

PATIENT
  Sex: Female
  Weight: 50.8029 kg

DRUGS (1)
  1. EFFEXOR [Suspect]
     Indication: MAJOR DEPRESSION
     Dosage: 2X DAILY ORAL
     Route: 048
     Dates: start: 19881001, end: 19881031

REACTIONS (5)
  - BEDRIDDEN [None]
  - DIZZINESS [None]
  - FEELING ABNORMAL [None]
  - PARAESTHESIA [None]
  - TINNITUS [None]
